FAERS Safety Report 20662870 (Version 1)
Quarter: 2022Q2

REPORT INFORMATION
  Report Type: Spontaneous
  Country: AU (occurrence: AU)
  Receive Date: 20220401
  Receipt Date: 20220401
  Transmission Date: 20220721
  Serious: Yes (Death, Hospitalization)
  Sender: FDA-Public Use
  Company Number: AU-MYLANLABS-2022M1024188

PATIENT
  Age: 22 Year
  Sex: Female

DRUGS (12)
  1. DEXAMETHASONE [Suspect]
     Active Substance: DEXAMETHASONE
     Indication: Adjuvant therapy
     Dosage: 4 MILLIGRAM
     Route: 065
     Dates: start: 201104, end: 201104
  2. DEXAMETHASONE [Suspect]
     Active Substance: DEXAMETHASONE
     Indication: Respiratory tract infection
  3. METRONIDAZOLE [Suspect]
     Active Substance: METRONIDAZOLE
     Indication: Antibiotic therapy
     Dosage: UNK
     Route: 065
     Dates: start: 201104, end: 201104
  4. DIPHTHERIA ANTITOXIN [Suspect]
     Active Substance: DIPHTHERIA ANTITOXIN
     Indication: Diphtheria
     Dosage: 100000 UNITS
     Route: 042
     Dates: start: 201104
  5. DIPHTHERIA ANTITOXIN [Suspect]
     Active Substance: DIPHTHERIA ANTITOXIN
     Indication: Corynebacterium infection
  6. LINCOMYCIN [Suspect]
     Active Substance: LINCOMYCIN
     Indication: Diphtheria
     Dosage: 1000 MILLIGRAM, Q8H
     Route: 042
     Dates: start: 201104
  7. LINCOMYCIN [Suspect]
     Active Substance: LINCOMYCIN
     Indication: Corynebacterium infection
  8. PENICILLIN V [Concomitant]
     Active Substance: PENICILLIN V
     Indication: Antibiotic therapy
     Dosage: 500 MILLIGRAM, BID
     Route: 048
     Dates: start: 201104, end: 201104
  9. PENICILLIN G [Concomitant]
     Active Substance: PENICILLIN G
     Indication: Antibiotic therapy
     Dosage: THREE DOSES OF 1.2G OVER 8H
     Route: 042
  10. PENICILLIN G [Concomitant]
     Active Substance: PENICILLIN G
     Dosage: 2.4 GRAM, Q6H
     Route: 042
     Dates: start: 201104, end: 201104
  11. MEROPENEM [Concomitant]
     Active Substance: MEROPENEM
     Indication: Diphtheria
     Dosage: 1000 MILLIGRAM, Q8H
     Route: 042
     Dates: start: 201104
  12. MEROPENEM [Concomitant]
     Active Substance: MEROPENEM
     Indication: Corynebacterium infection

REACTIONS (1)
  - Drug ineffective [Fatal]

NARRATIVE: CASE EVENT DATE: 20110401
